FAERS Safety Report 16105761 (Version 2)
Quarter: 2019Q2

REPORT INFORMATION
  Report Type: Report from Study
  Country: GB (occurrence: GB)
  Receive Date: 20190322
  Receipt Date: 20190412
  Transmission Date: 20190711
  Serious: Yes (Other)
  Sender: FDA-Public Use
  Company Number: GB-ASPEN-GLO2019GB002766

PATIENT
  Age: 63 Year
  Sex: Male

DRUGS (4)
  1. CHLORAMBUCIL [Suspect]
     Active Substance: CHLORAMBUCIL
     Dosage: CYCLICAL
     Route: 065
  2. CHLORAMBUCIL [Suspect]
     Active Substance: CHLORAMBUCIL
     Indication: LYMPHOCYTIC LYMPHOMA
     Dosage: CYCLICAL - 6 CYCLES
     Route: 065
  3. MITOXANTRONE [Suspect]
     Active Substance: MITOXANTRONE HYDROCHLORIDE
     Indication: LYMPHOCYTIC LYMPHOMA
     Dosage: CYCLICAL - 6 CYCLES
     Route: 065
  4. PREDNISOLONE. [Suspect]
     Active Substance: PREDNISOLONE
     Indication: LYMPHOCYTIC LYMPHOMA
     Dosage: CYCLICAL - 6 CYCLES
     Route: 065

REACTIONS (2)
  - Apoptosis [Unknown]
  - Genotoxicity [Unknown]
